FAERS Safety Report 8513402 (Version 2)
Quarter: 2012Q4

REPORT INFORMATION
  Report Type: Report from Study
  Country: IT (occurrence: IT)
  Receive Date: 20120416
  Receipt Date: 20121026
  Transmission Date: 20130627
  Serious: Yes (Hospitalization)
  Sender: FDA-Public Use
  Company Number: IT-JNJFOC-20120402928

PATIENT
  Age: 12 Year
  Sex: Male
  Weight: 25.7 kg

DRUGS (3)
  1. REMICADE [Suspect]
     Indication: CROHN^S DISEASE
     Route: 042
     Dates: start: 20110222
  2. ANTIBIOTICS [Concomitant]
     Indication: CROHN^S DISEASE
  3. 5-ASA [Concomitant]
     Route: 054

REACTIONS (1)
  - Crohn^s disease [Recovered/Resolved]
